FAERS Safety Report 20730190 (Version 1)
Quarter: 2022Q2

REPORT INFORMATION
  Report Type: Other
  Country: ZA (occurrence: None)
  Receive Date: 20220420
  Receipt Date: 20220420
  Transmission Date: 20220720
  Serious: Yes (Other)
  Sender: FDA-Public Use
  Company Number: ZA-ROCHE-3073613

PATIENT
  Sex: Female

DRUGS (1)
  1. OCREVUS [Suspect]
     Active Substance: OCRELIZUMAB
     Indication: Multiple sclerosis
     Dosage: TEN 600MG EVERY 6 MONTHS.
     Route: 041
     Dates: start: 20210921

REACTIONS (4)
  - Optic atrophy [Unknown]
  - Gliosis [Unknown]
  - Paranasal sinus mucosal hypertrophy [Unknown]
  - Multiple sclerosis [Unknown]
